FAERS Safety Report 5917705-3 (Version None)
Quarter: 2008Q4

REPORT INFORMATION
  Report Type: 
  Country: None (occurrence: None)
  Receive Date: 20081009
  Receipt Date: 20080926
  Transmission Date: 20090506
  Serious: Yes (Other)
  Sender: FDA-Public Use
  Company Number: 080930-0000766

PATIENT
  Age: 59 Year
  Sex: Female

DRUGS (6)
  1. NEMBUTAL [Suspect]
     Indication: STATUS EPILEPTICUS
  2. LORAZEPAM [Concomitant]
  3. ERTAPENEM [Concomitant]
  4. PHENYTOIN [Concomitant]
  5. LEVETIRACETAM [Concomitant]
  6. PROPOFOL [Concomitant]

REACTIONS (4)
  - DRUG TOXICITY [None]
  - HYPOTENSION [None]
  - LACTIC ACIDOSIS [None]
  - METABOLIC ACIDOSIS [None]
